FAERS Safety Report 12132116 (Version 2)
Quarter: 2016Q3

REPORT INFORMATION
  Report Type: Spontaneous
  Country: CL (occurrence: CL)
  Receive Date: 20160301
  Receipt Date: 20160721
  Transmission Date: 20161109
  Serious: Yes (Other)
  Sender: FDA-Public Use
  Company Number: CL-NOVOPROD-481505

PATIENT
  Age: 29 Year
  Sex: Female

DRUGS (2)
  1. APIDRA [Concomitant]
     Active Substance: INSULIN GLULISINE
     Dosage: 10-12 UI TID FOR 10 YEARS
     Route: 065
  2. TRESIBA [Suspect]
     Active Substance: INSULIN DEGLUDEC
     Indication: TYPE 1 DIABETES MELLITUS
     Dosage: 8 IU, QD
     Route: 058
     Dates: start: 201511, end: 201601

REACTIONS (2)
  - Exposure during pregnancy [Recovered/Resolved]
  - Foetal death [Unknown]

NARRATIVE: CASE EVENT DATE: 201511
